FAERS Safety Report 5702308-6 (Version None)
Quarter: 2008Q2

REPORT INFORMATION
  Report Type: 
  Country: None (occurrence: None)
  Receive Date: 20080411
  Receipt Date: 20080331
  Transmission Date: 20081010
  Serious: Yes (Hospitalization)
  Sender: FDA-Public Use
  Company Number: US-AMGEN-STX265868

PATIENT
  Sex: Female

DRUGS (3)
  1. ENBREL [Suspect]
     Indication: SCLERODERMA
     Route: 058
     Dates: start: 20040412
  2. ENBREL [Suspect]
     Indication: RHEUMATOID ARTHRITIS
  3. CYTOXAN [Concomitant]
     Dates: start: 20080126

REACTIONS (1)
  - RAYNAUD'S PHENOMENON [None]
